FAERS Safety Report 5875210-7 (Version None)
Quarter: 2008Q3

REPORT INFORMATION
  Report Type: 
  Country: None (occurrence: None)
  Receive Date: 20080904
  Receipt Date: 20080821
  Transmission Date: 20090109
  Serious: Yes (Other)
  Sender: FDA-Public Use
  Company Number: 310057J08USA

PATIENT

DRUGS (2)
  1. GONAL-F [Suspect]
     Indication: INFERTILITY
  2. LUPRON [Suspect]

REACTIONS (2)
  - DRUG EXPOSURE BEFORE PREGNANCY [None]
  - FOETAL GROWTH RETARDATION [None]
